FAERS Safety Report 12431164 (Version 4)
Quarter: 2016Q3

REPORT INFORMATION
  Report Type: Spontaneous
  Country: JP (occurrence: JP)
  Receive Date: 20160603
  Receipt Date: 20160909
  Transmission Date: 20161109
  Serious: Yes (Hospitalization)
  Sender: FDA-Public Use
  Company Number: JP-AMGEN-JPNSP2016070731

PATIENT
  Age: 58 Year
  Sex: Female
  Weight: 49 kg

DRUGS (12)
  1. RANMARK [Suspect]
     Active Substance: DENOSUMAB
     Dosage: 120 MG, QMO
     Route: 058
     Dates: start: 20160406
  2. FEMARA [Concomitant]
     Active Substance: LETROZOLE
     Indication: BREAST CANCER
     Dosage: 2.5 MG, QD
     Route: 048
     Dates: start: 20140618, end: 20160518
  3. RANMARK [Suspect]
     Active Substance: DENOSUMAB
     Indication: METASTASES TO BONE
     Dosage: 120 MG, QMO
     Route: 058
     Dates: start: 20140618
  4. LYRICA [Concomitant]
     Active Substance: PREGABALIN
     Indication: ANALGESIC THERAPY
     Dosage: 25 MG, BID
     Route: 048
     Dates: start: 20140618
  5. LOXONIN [Concomitant]
     Active Substance: LOXOPROFEN SODIUM
     Indication: ANALGESIC THERAPY
     Dosage: 60 MG, TID
     Route: 048
     Dates: start: 20140618
  6. OXYCONTIN [Concomitant]
     Active Substance: OXYCODONE HYDROCHLORIDE
     Indication: ANALGESIC THERAPY
     Dosage: 5 MG, BID
     Route: 048
     Dates: start: 20140618, end: 20160518
  7. OXYCONTIN [Concomitant]
     Active Substance: OXYCODONE HYDROCHLORIDE
     Indication: BREAST CANCER
  8. LOXONIN [Concomitant]
     Active Substance: LOXOPROFEN SODIUM
     Indication: BREAST CANCER
  9. ONEALFA [Concomitant]
     Active Substance: ALFACALCIDOL
     Indication: BREAST CANCER
     Dosage: 1 MUG, QWK
     Route: 048
     Dates: start: 20140625, end: 20160518
  10. NEXIUM [Concomitant]
     Active Substance: ESOMEPRAZOLE MAGNESIUM
     Indication: BREAST CANCER
     Dosage: 20 MG, QD
     Route: 048
     Dates: start: 20140618
  11. LOXOPROFEN NA [Concomitant]
     Active Substance: LOXOPROFEN SODIUM
     Indication: ANALGESIC THERAPY
     Dosage: 60 MG, TID
     Route: 048
     Dates: start: 20140618
  12. RANMARK [Suspect]
     Active Substance: DENOSUMAB
     Dosage: 120 MG, QMO
     Route: 058
     Dates: start: 20160518

REACTIONS (2)
  - Gingival abscess [Not Recovered/Not Resolved]
  - Osteonecrosis of jaw [Not Recovered/Not Resolved]

NARRATIVE: CASE EVENT DATE: 20160427
